FAERS Safety Report 4331322-0 (Version None)
Quarter: 2004Q1

REPORT INFORMATION
  Report Type: 
  Country: None (occurrence: None)
  Receive Date: 20040329
  Receipt Date: 20040313
  Transmission Date: 20041129
  Serious: Yes (Hospitalization)
  Sender: FDA-Public Use
  Company Number: US-SHR-04-022555

PATIENT
  Age: 51 Year
  Sex: Female

DRUGS (5)
  1. BETASERON [Suspect]
     Indication: PROGRESSIVE MULTIPLE SCLEROSIS
     Dosage: 2MIU, EVERY 2D, SUBCUTANEOUS
     Route: 058
     Dates: start: 20040312, end: 20040312
  2. PROZAC [Concomitant]
  3. NEURONTIN [Concomitant]
  4. BACLOFEN [Concomitant]
  5. FOLIC ACID [Concomitant]

REACTIONS (1)
  - MOBILITY DECREASED [None]
